FAERS Safety Report 6309740-0 (Version None)
Quarter: 2009Q3

REPORT INFORMATION
  Report Type: 
  Country: None (occurrence: None)
  Receive Date: 20090814
  Receipt Date: 20090805
  Transmission Date: 20100115
  Serious: Yes (Other)
  Sender: FDA-Public Use
  Company Number: US-CELGENEUS-163-20785-09031723

PATIENT
  Sex: Male
  Weight: 90.8 kg

DRUGS (4)
  1. THALOMID [Suspect]
     Indication: ERYTHEMA NODOSUM LEPROSUM
     Route: 048
     Dates: start: 20090227, end: 20090401
  2. THALOMID [Suspect]
     Route: 048
     Dates: start: 20090406, end: 20090416
  3. PREDNISONE [Concomitant]
     Indication: DRUG USE FOR UNKNOWN INDICATION
     Route: 065
  4. SEPTRA [Concomitant]
     Indication: DRUG USE FOR UNKNOWN INDICATION
     Route: 065

REACTIONS (7)
  - ANAEMIA [None]
  - ANXIETY [None]
  - BRADYCARDIA [None]
  - DYSPNOEA [None]
  - NEUROPATHY PERIPHERAL [None]
  - PARANOIA [None]
  - PRESYNCOPE [None]
